FAERS Safety Report 9369878 (Version 1)
Quarter: 2013Q2

REPORT INFORMATION
  Report Type: Spontaneous
  Country: US (occurrence: None)
  Receive Date: 20130625
  Receipt Date: 20130625
  Transmission Date: 20140414
  Serious: Yes (Other)
  Sender: FDA-Public Use
  Company Number: None

PATIENT
  Age: 54 Year
  Sex: Female
  Weight: 101.61 kg

DRUGS (1)
  1. VANCOMYCIN [Suspect]
     Indication: BACTERIAL TEST POSITIVE
     Dates: start: 20130606, end: 20130617

REACTIONS (8)
  - Pyrexia [None]
  - Arthralgia [None]
  - Rash erythematous [None]
  - Rash [None]
  - Rash [None]
  - Arthralgia [None]
  - Asthenia [None]
  - Pruritus [None]
